FAERS Safety Report 17881264 (Version 1)
Quarter: 2020Q2

REPORT INFORMATION
  Report Type: Spontaneous
  Country: US (occurrence: US)
  Receive Date: 20200610
  Receipt Date: 20200610
  Transmission Date: 20200714
  Serious: Yes (Death, Life-Threatening, Disabling)
  Sender: FDA-Public Use
  Company Number: None

PATIENT
  Age: 61 Year
  Sex: Male
  Weight: 84.1 kg

DRUGS (10)
  1. THERAPEUTIC LOVENOX (80 MG SQ BID) [Concomitant]
     Dates: start: 20200606, end: 20200607
  2. PROPHYLACTIC LOVENOX (40 MG SQ BID) [Concomitant]
     Dates: start: 20200607, end: 20200610
  3. REMDESIVIR INJECTION [Suspect]
     Active Substance: REMDESIVIR
     Indication: SARS-COV-2 TEST POSITIVE
     Route: 042
     Dates: start: 20200602, end: 20200606
  4. VANCOMCYCIN [Concomitant]
     Dates: start: 20200601, end: 20200603
  5. ZOSYN [Concomitant]
     Active Substance: PIPERACILLIN SODIUM\TAZOBACTAM SODIUM
     Dates: start: 20200601, end: 20200610
  6. NOREPINEPHRINE DRIP [Concomitant]
     Dates: start: 20200604, end: 20200607
  7. COVID-19 CONVALESCENT PLASMA [Concomitant]
     Dates: start: 20200606, end: 20200606
  8. AMIODARONE DRIP [Concomitant]
     Dates: start: 20200604, end: 20200609
  9. AZITHROMYCIN ANHYDROUS. [Concomitant]
     Active Substance: AZITHROMYCIN ANHYDROUS
     Dates: start: 20200601, end: 20200603
  10. PROPHYLACTIC LOVENOX (40 MG SQ BID) [Concomitant]
     Dates: start: 20200602, end: 20200605

REACTIONS (3)
  - Atrial flutter [None]
  - Ischaemic stroke [None]
  - Nervous system disorder [None]

NARRATIVE: CASE EVENT DATE: 20200610
